FAERS Safety Report 9527636 (Version 1)
Quarter: 2013Q3

REPORT INFORMATION
  Report Type: Spontaneous
  Country: US (occurrence: None)
  Receive Date: 20130913
  Receipt Date: 20130913
  Transmission Date: 20140515
  Serious: Yes (Other)
  Sender: FDA-Public Use
  Company Number: ACO_38293_2013

PATIENT
  Age: 69 Year
  Sex: Female
  Weight: 56.7 kg

DRUGS (2)
  1. AMPYRA [Suspect]
     Indication: GAIT DISTURBANCE
     Dates: start: 2013, end: 2013
  2. AMPYRA [Suspect]
     Indication: MULTIPLE SCLEROSIS
     Dates: start: 2013, end: 2013

REACTIONS (9)
  - Loss of consciousness [None]
  - Chest pain [None]
  - Dyspnoea [None]
  - Vomiting [None]
  - Fall [None]
  - Vertigo [None]
  - Diarrhoea [None]
  - Headache [None]
  - Nausea [None]
